FAERS Safety Report 6123972-6 (Version None)
Quarter: 2009Q1

REPORT INFORMATION
  Report Type: 
  Country: None (occurrence: None)
  Receive Date: 20090319
  Receipt Date: 20090217
  Transmission Date: 20090719
  Serious: Yes (Other)
  Sender: FDA-Public Use
  Company Number: US-BAYER-200913480NA

PATIENT
  Age: 33 Year
  Sex: Female
  Weight: 70 kg

DRUGS (1)
  1. MIRENA [Suspect]
     Indication: CONTRACEPTION
     Route: 015
     Dates: start: 20080801

REACTIONS (9)
  - ADNEXA UTERI PAIN [None]
  - BLOOD PRESSURE SYSTOLIC INCREASED [None]
  - HYPOAESTHESIA [None]
  - MENSTRUAL DISORDER [None]
  - MIGRAINE [None]
  - PROCEDURAL PAIN [None]
  - RASH [None]
  - UTERINE SPASM [None]
  - WEIGHT DECREASED [None]
